FAERS Safety Report 6427724-9 (Version None)
Quarter: 2009Q4

REPORT INFORMATION
  Report Type: 
  Country: None (occurrence: None)
  Receive Date: 20091105
  Receipt Date: 20091030
  Transmission Date: 20100525
  Serious: Yes (Death, Other)
  Sender: FDA-Public Use
  Company Number: US-BIOGENIDEC-2009BI033809

PATIENT
  Sex: Female

DRUGS (2)
  1. AVONEX [Suspect]
     Indication: MULTIPLE SCLEROSIS
     Route: 030
     Dates: start: 19980615
  2. AVONEX [Suspect]
     Route: 030
     Dates: start: 20000313, end: 20050613

REACTIONS (2)
  - COLON CANCER [None]
  - COLON CANCER METASTATIC [None]
